FAERS Safety Report 4861046-2 (Version None)
Quarter: 2005Q4

REPORT INFORMATION
  Report Type: 
  Country: None (occurrence: None)
  Receive Date: 20051216
  Receipt Date: 20051128
  Transmission Date: 20060501
  Serious: No
  Sender: FDA-Public Use
  Company Number: US_0507119831

PATIENT
  Age: 33 Year
  Sex: Male
  Weight: 112.7 kg

DRUGS (7)
  1. ZYPREXA [Suspect]
     Indication: SCHIZOPHRENIA
     Dosage: 30 MG, EACH EVENING
     Dates: start: 19980521, end: 20031120
  2. RISPERDAL [Concomitant]
  3. SEROQUEL [Concomitant]
  4. TRICOR [Concomitant]
  5. ATENOLOL [Concomitant]
  6. NIACIN (NIACIN UNKNOWN FORMULATION) [Concomitant]
  7. LISINOPRIL [Concomitant]

REACTIONS (8)
  - BLOOD CHOLESTEROL INCREASED [None]
  - BLOOD TRIGLYCERIDES INCREASED [None]
  - CHEST PAIN [None]
  - DIABETES MELLITUS [None]
  - HYPERCOAGULATION [None]
  - HYPOAESTHESIA [None]
  - PARAESTHESIA [None]
  - TREMOR [None]
